FAERS Safety Report 5063997-5 (Version None)
Quarter: 2006Q3

REPORT INFORMATION
  Report Type: 
  Country: None (occurrence: None)
  Receive Date: 20060703
  Receipt Date: 20060320
  Transmission Date: 20061208
  Serious: Yes (Other)
  Sender: FDA-Public Use
  Company Number: 144707USA

PATIENT
  Age: 50 Year
  Sex: Male

DRUGS (4)
  1. RIBAVIRIN [Suspect]
     Indication: HEPATITIS C
     Dates: start: 20060218, end: 20060218
  2. PEGASYS [Suspect]
     Indication: HEPATITIS C
     Dates: start: 20060218, end: 20060218
  3. PRILOSEC [Concomitant]
  4. IBUPROFEN [Concomitant]

REACTIONS (2)
  - DYSPNOEA [None]
  - PRURITUS [None]
